FAERS Safety Report 10558429 (Version 1)
Quarter: 2014Q4

REPORT INFORMATION
  Report Type: Spontaneous
  Country: IT (occurrence: IT)
  Receive Date: 20141031
  Receipt Date: 20141031
  Transmission Date: 20150529
  Serious: Yes (Disabling)
  Sender: FDA-Public Use
  Company Number: IT-AMGEN-ITASP2014083242

PATIENT
  Age: 69 Year
  Sex: Male

DRUGS (2)
  1. ZOMETA [Suspect]
     Active Substance: ZOLEDRONIC ACID
     Indication: NEOPLASM PROSTATE
     Dosage: 04 MG, QMO
     Route: 042
     Dates: start: 20130301
  2. XGEVA [Suspect]
     Active Substance: DENOSUMAB
     Indication: NEOPLASM PROSTATE
     Dosage: 120 MG, CYCLICAL
     Route: 058
     Dates: start: 20140501

REACTIONS (1)
  - Osteonecrosis of jaw [Not Recovered/Not Resolved]

NARRATIVE: CASE EVENT DATE: 20140704
